FAERS Safety Report 6397398-4 (Version None)
Quarter: 2009Q4

REPORT INFORMATION
  Report Type: 
  Country: None (occurrence: None)
  Receive Date: 20091012
  Receipt Date: 20090930
  Transmission Date: 20100525
  Serious: Yes (Hospitalization)
  Sender: FDA-Public Use
  Company Number: PHHY2009CH41913

PATIENT
  Sex: Male

DRUGS (8)
  1. DIOVAN [Suspect]
     Dosage: 80 MG PER DAY
     Dates: end: 20090629
  2. JANUVIA [Suspect]
     Dosage: 100 MG PER DAY
     Dates: end: 20090629
  3. CRESTOR [Suspect]
     Dosage: 10 MG PER DAY
     Dates: end: 20090629
  4. NEXIUM [Suspect]
     Indication: GASTRITIS
     Dosage: 40 MG PER DAY
     Dates: start: 20090609, end: 20090629
  5. TORSEMIDE [Suspect]
     Dosage: 5 MG PER DAY
     Dates: end: 20090629
  6. GLUCOPHAGE [Concomitant]
     Dosage: 1000 MG DAY
     Dates: end: 20090629
  7. ANTRA [Concomitant]
  8. FAMOTIDINE [Concomitant]

REACTIONS (4)
  - ABDOMINAL PAIN [None]
  - BILIARY DILATATION [None]
  - LIPASE INCREASED [None]
  - PANCREATITIS [None]
